FAERS Safety Report 5295664-7 (Version None)
Quarter: 2007Q2

REPORT INFORMATION
  Report Type: 
  Country: None (occurrence: None)
  Receive Date: 20070410
  Receipt Date: 20070410
  Transmission Date: 20071010
  Serious: No
  Sender: FDA-Public Use
  Company Number: None

PATIENT
  Age: 63 Year
  Weight: 79.8331 kg

DRUGS (1)
  1. CHLOR-TRIMETON [Suspect]
     Indication: SEASONAL ALLERGY
     Dosage: 4MG 2XDAY
     Dates: start: 20070301, end: 20070409

REACTIONS (3)
  - FATIGUE [None]
  - GAIT DISTURBANCE [None]
  - MUSCULAR WEAKNESS [None]
